FAERS Safety Report 9165673 (Version 4)
Quarter: 2013Q4

REPORT INFORMATION
  Report Type: Spontaneous
  Country: US (occurrence: US)
  Receive Date: 20130315
  Receipt Date: 20131219
  Transmission Date: 20140711
  Serious: No
  Sender: FDA-Public Use
  Company Number: US-PFIZER INC-2013084765

PATIENT
  Age: 66 Year
  Sex: Female
  Weight: 68 kg

DRUGS (2)
  1. PREMARIN [Suspect]
     Indication: MENOPAUSAL SYMPTOMS
     Dosage: 0.625 MG, 1X/DAY
     Route: 048
  2. PREMARIN [Suspect]
     Dosage: 0.45 MG (HALF TABLET OF 0.9MG), UNK

REACTIONS (4)
  - Suspected counterfeit product [Unknown]
  - Urine odour abnormal [Unknown]
  - Pain in extremity [Not Recovered/Not Resolved]
  - Skin odour abnormal [Not Recovered/Not Resolved]
